FAERS Safety Report 8048583-7 (Version None)
Quarter: 2012Q1

REPORT INFORMATION
  Report Type: 
  Country: None (occurrence: None)
  Receive Date: 20120117
  Receipt Date: 20120106
  Transmission Date: 20120608
  Serious: Yes (Other)
  Sender: FDA-Public Use
  Company Number: GB-JNJFOC-20120102031

PATIENT
  Age: 69 Year
  Sex: Female

DRUGS (4)
  1. STEROIDS NOS [Concomitant]
  2. INFLIXIMAB, RECOMBINANT [Suspect]
     Indication: RHEUMATOID ARTHRITIS
     Route: 042
     Dates: start: 20030930
  3. INFLIXIMAB, RECOMBINANT [Suspect]
     Route: 042
     Dates: start: 20031110
  4. OTHER THERAPEUTIC AGENT [Concomitant]

REACTIONS (1)
  - BREAST CANCER [None]
